FAERS Safety Report 10592761 (Version 1)
Quarter: 2014Q4

REPORT INFORMATION
  Report Type: Spontaneous
  Country: US (occurrence: None)
  Receive Date: 20141118
  Receipt Date: 20141118
  Transmission Date: 20150529
  Serious: Yes (Life-Threatening, Hospitalization, Disabling, Other)
  Sender: FDA-Public Use
  Company Number: None

PATIENT
  Age: 59 Year
  Sex: Female
  Weight: 41.28 kg

DRUGS (16)
  1. WARFARIN [Suspect]
     Active Substance: WARFARIN
     Indication: INTESTINAL ISCHAEMIA
     Dosage: 5 MG 2 PILLS DAILY 1X DAILY AM
     Route: 048
     Dates: start: 201407, end: 20140807
  2. COUMADIN [Suspect]
     Active Substance: WARFARIN SODIUM
  3. METHOCARBAMOL. [Concomitant]
     Active Substance: METHOCARBAMOL
  4. MUCINEX [Concomitant]
     Active Substance: GUAIFENESIN
  5. LATULOSE SOLUTION [Concomitant]
  6. LAMOTRIGINE. [Concomitant]
     Active Substance: LAMOTRIGINE
  7. TRAZODONE [Concomitant]
     Active Substance: TRAZODONE HYDROCHLORIDE
  8. XANAX [Concomitant]
     Active Substance: ALPRAZOLAM
  9. LORATADINE. [Concomitant]
     Active Substance: LORATADINE
  10. MILK OF MAGNESIA [Concomitant]
     Active Substance: MAGNESIUM HYDROXIDE
  11. CLOMZOPAM [Concomitant]
  12. ASPIRIN. [Concomitant]
     Active Substance: ASPIRIN
  13. ACETAMINOPHEN. [Concomitant]
     Active Substance: ACETAMINOPHEN
  14. VITAMIN C [Concomitant]
     Active Substance: ASCORBIC ACID
  15. VENLAFAXINE [Concomitant]
     Active Substance: VENLAFAXINE HYDROCHLORIDE
  16. SENN-S-LAXATIVE [Concomitant]

REACTIONS (3)
  - Thrombosis [None]
  - Haemorrhage [None]
  - Quadriplegia [None]

NARRATIVE: CASE EVENT DATE: 20140808
